FAERS Safety Report 6129486-1 (Version None)
Quarter: 2009Q1

REPORT INFORMATION
  Report Type: 
  Country: None (occurrence: None)
  Receive Date: 20090323
  Receipt Date: 20090323
  Transmission Date: 20090719
  Serious: Yes (Other)
  Sender: FDA-Public Use
  Company Number: None

PATIENT
  Age: 2 Year
  Sex: Female
  Weight: 13.6079 kg

DRUGS (2)
  1. CEFDINIR [Suspect]
     Indication: EAR INFECTION
     Dosage: 3/4 TEASPOON ONCE DAILY UNK
     Route: 065
     Dates: start: 20090318, end: 20090319
  2. CEFDINIR [Suspect]
     Indication: RHINORRHOEA
     Dosage: 3/4 TEASPOON ONCE DAILY UNK
     Route: 065
     Dates: start: 20090318, end: 20090319

REACTIONS (3)
  - DRUG INEFFECTIVE [None]
  - PYREXIA [None]
  - VOMITING [None]
